FAERS Safety Report 13731235 (Version 1)
Quarter: 2017Q3

REPORT INFORMATION
  Report Type: Spontaneous
  Country: US (occurrence: US)
  Receive Date: 20170707
  Receipt Date: 20170707
  Transmission Date: 20171127
  Serious: No
  Sender: FDA-Public Use
  Company Number: US-JNJFOC-20160801000

PATIENT
  Sex: Male
  Weight: 99.79 kg

DRUGS (5)
  1. BENZOTROPINE [Concomitant]
     Active Substance: BENZTROPINE
     Indication: PROPHYLAXIS
     Route: 065
  2. MELATONIN [Concomitant]
     Active Substance: MELATONIN
     Indication: SLEEP DISORDER
     Dosage: 300MG/ -/ 150MG/ AT BEDTIME
     Route: 065
     Dates: start: 201601
  3. LITHIUM. [Concomitant]
     Active Substance: LITHIUM
     Indication: AFFECTIVE DISORDER
     Dosage: 900MG/ -/ 300MG/ AT BEDTIME
     Route: 065
     Dates: start: 201602
  4. TRAZODONE [Concomitant]
     Active Substance: TRAZODONE HYDROCHLORIDE
     Indication: SLEEP DISORDER
     Dosage: 300MG/ -/ 150MG/ AT BEDTIME
     Route: 065
     Dates: start: 201601
  5. INVEGA [Suspect]
     Active Substance: PALIPERIDONE
     Indication: SCHIZOPHRENIA
     Route: 048

REACTIONS (1)
  - Treatment noncompliance [Unknown]
